FAERS Safety Report 6752948-0 (Version None)
Quarter: 2010Q2

REPORT INFORMATION
  Report Type: 
  Country: None (occurrence: None)
  Receive Date: 20100603
  Receipt Date: 20100527
  Transmission Date: 20101027
  Serious: Yes (Hospitalization)
  Sender: FDA-Public Use
  Company Number: IT-JNJFOC-20100308672

PATIENT
  Age: 88 Year
  Sex: Female

DRUGS (8)
  1. TAVANIC [Suspect]
     Indication: URINARY TRACT INFECTION
     Route: 048
  2. ENOXAPARIN SODIUM [Concomitant]
     Route: 065
  3. BISOPROLOL [Concomitant]
     Route: 065
  4. DIGOXIN [Concomitant]
     Route: 065
  5. OMEPRAZOLE [Concomitant]
     Route: 065
  6. TAPAZOLE [Concomitant]
     Route: 065
  7. FLUSPIRAL [Concomitant]
     Route: 065
  8. LORAZEPAM [Concomitant]
     Route: 065

REACTIONS (2)
  - DISORIENTATION [None]
  - HALLUCINATION [None]
